FAERS Safety Report 5026954-0 (Version None)
Quarter: 2006Q2

REPORT INFORMATION
  Report Type: 
  Country: None (occurrence: None)
  Receive Date: 20060615
  Receipt Date: 20060608
  Transmission Date: 20061013
  Serious: Yes (Hospitalization, Disabling)
  Sender: FDA-Public Use
  Company Number: FR-AVENTIS-200612083FR

PATIENT
  Age: 57 Year
  Sex: Male

DRUGS (9)
  1. AMARYL [Suspect]
     Indication: DIABETES MELLITUS NON-INSULIN-DEPENDENT
     Route: 048
  2. AMARYL [Suspect]
     Route: 048
  3. ACTOS [Concomitant]
     Route: 048
  4. FENOFIBRATE [Concomitant]
     Route: 048
  5. PHYSIOTENS [Concomitant]
  6. LISINOPRIL [Concomitant]
  7. OLMETEC                                 /GFR/ [Concomitant]
  8. DULCOLAX [Concomitant]
  9. AMLOR [Concomitant]
     Route: 048

REACTIONS (1)
  - HYPOGLYCAEMIA [None]
